FAERS Safety Report 8309959-3 (Version None)
Quarter: 2012Q2

REPORT INFORMATION
  Report Type: 
  Country: None (occurrence: None)
  Receive Date: 20120423
  Receipt Date: 20120412
  Transmission Date: 20120825
  Serious: Yes (Other)
  Sender: FDA-Public Use
  Company Number: SE-GDP-12413529

PATIENT
  Age: 16 Year
  Sex: Female

DRUGS (1)
  1. DIFFERIN [Suspect]
     Indication: PRODUCT USED FOR UNKNOWN INDICATION
     Dosage: (TOPICAL)
     Route: 061

REACTIONS (1)
  - ANGIOEDEMA [None]
